FAERS Safety Report 17278684 (Version 1)
Quarter: 2020Q1

REPORT INFORMATION
  Report Type: Other
  Country: None (occurrence: US)
  Receive Date: 20200116
  Receipt Date: 20200116
  Transmission Date: 20200409
  Serious: Yes (Other)
  Sender: FDA-Public Use
  Company Number: US-ALFASIGMA USA, INC.-2079097

PATIENT
  Age: 17 Year
  Sex: Female

DRUGS (1)
  1. ZELNORM [Suspect]
     Active Substance: TEGASEROD MALEATE
     Route: 048

REACTIONS (1)
  - Serotonin syndrome [Unknown]
